FAERS Safety Report 9349729 (Version 2)
Quarter: 2013Q2

REPORT INFORMATION
  Report Type: Spontaneous
  Country: GB (occurrence: None)
  Receive Date: 20130611
  Receipt Date: 20130624
  Transmission Date: 20140414
  Serious: Yes (Hospitalization, Congenital Anomaly, Other)
  Sender: FDA-Public Use
  Company Number: AUR-APL-2013-04597

PATIENT
  Sex: Male
  Weight: 1.77 kg

DRUGS (3)
  1. SERTRALINE [Suspect]
     Indication: DEPRESSION
     Route: 064
     Dates: start: 20090125
  2. SERTRALINE [Suspect]
     Indication: OBSESSIVE-COMPULSIVE DISORDER
     Route: 064
     Dates: start: 20090125
  3. VITAMINS [Concomitant]

REACTIONS (10)
  - Maternal drugs affecting foetus [None]
  - Small for dates baby [None]
  - Naevus flammeus [None]
  - Haemangioma congenital [None]
  - Feeding disorder neonatal [None]
  - Blood pH decreased [None]
  - Foetal growth restriction [None]
  - Premature baby [None]
  - Caesarean section [None]
  - Breech presentation [None]
